FAERS Safety Report 7292441-2 (Version None)
Quarter: 2011Q1

REPORT INFORMATION
  Report Type: 
  Country: None (occurrence: None)
  Receive Date: 20110215
  Receipt Date: 20110209
  Transmission Date: 20110831
  Serious: No
  Sender: FDA-Public Use
  Company Number: US-PFIZER INC-2011029636

PATIENT
  Sex: Female
  Weight: 68.027 kg

DRUGS (5)
  1. CELEBREX [Suspect]
     Indication: PAIN
     Dosage: 100 MG, 2X/DAY
     Route: 048
     Dates: start: 20101001, end: 20110208
  2. TOPROL-XL [Concomitant]
     Indication: HYPERTENSION
     Dosage: UNK
  3. SYNTHROID [Concomitant]
     Indication: THYROID DISORDER
     Dosage: UNK
  4. PREVACID [Concomitant]
     Indication: ULCER
     Dosage: UNK
  5. DARIFENACIN [Concomitant]
     Indication: BLADDER DISORDER
     Dosage: UNK

REACTIONS (2)
  - DRUG EFFECT DECREASED [None]
  - RASH MACULAR [None]
